FAERS Safety Report 6021739-0 (Version None)
Quarter: 2008Q4

REPORT INFORMATION
  Report Type: 
  Country: None (occurrence: None)
  Receive Date: 20081229
  Receipt Date: 20081217
  Transmission Date: 20090506
  Serious: Yes (Other)
  Sender: FDA-Public Use
  Company Number: PHEH2008US11190

PATIENT
  Sex: Male

DRUGS (1)
  1. VIVELLE-DOT [Suspect]
     Indication: PROSTATE CANCER
     Dosage: 9 PATCHES PER DAY
     Route: 062

REACTIONS (4)
  - ANGINA PECTORIS [None]
  - CORONARY ARTERIAL STENT INSERTION [None]
  - CORONARY ARTERY DISEASE [None]
  - CORONARY ARTERY OCCLUSION [None]
